FAERS Safety Report 26151146 (Version 1)
Quarter: 2025Q4

REPORT INFORMATION
  Report Type: Spontaneous
  Country: KR (occurrence: KR)
  Receive Date: 20251212
  Receipt Date: 20251212
  Transmission Date: 20260118
  Serious: Yes (Death)
  Sender: BOEHRINGER INGELHEIM
  Company Number: KR-BoehringerIngelheim-2025-BI-114455

PATIENT
  Age: 86 Year
  Sex: Male

DRUGS (1)
  1. OFEV [Suspect]
     Active Substance: NINTEDANIB
     Indication: Idiopathic pulmonary fibrosis

REACTIONS (11)
  - Sepsis [Fatal]
  - Multiple organ dysfunction syndrome [Fatal]
  - Pneumonia [Fatal]
  - Decreased appetite [Unknown]
  - Chills [Unknown]
  - Diarrhoea [Unknown]
  - Weight decreased [Unknown]
  - Fall [Recovered/Resolved]
  - Memory impairment [Unknown]
  - Hypophagia [Unknown]
  - Product administration error [Unknown]
